FAERS Safety Report 15983351 (Version 9)
Quarter: 2020Q1

REPORT INFORMATION
  Report Type: Report from Study
  Country: DE (occurrence: DE)
  Receive Date: 20190220
  Receipt Date: 20200106
  Transmission Date: 20200409
  Serious: Yes (Hospitalization, Other)
  Sender: FDA-Public Use
  Company Number: DE-ROCHE-2267079

PATIENT
  Age: 29 Year
  Sex: Female
  Weight: 100 kg

DRUGS (13)
  1. CETIRIZIN [Concomitant]
     Active Substance: CETIRIZINE HYDROCHLORIDE
     Dosage: ANTIHISTAMINIC
     Route: 048
     Dates: start: 20181204
  2. SATIVEX [Concomitant]
     Active Substance: NABIXIMOLS
     Indication: MUSCLE SPASTICITY
     Route: 048
     Dates: start: 20180821
  3. PREDNISOLON [PREDNISOLONE] [Concomitant]
     Active Substance: PREDNISOLONE
     Dosage: ANTIHISTAMINIC
     Route: 048
     Dates: start: 20181204, end: 20181204
  4. DIMETHYL FUMARATE [Concomitant]
     Active Substance: DIMETHYL FUMARATE
     Route: 065
  5. TERIFLUNOMIDE. [Concomitant]
     Active Substance: TERIFLUNOMIDE
     Route: 065
  6. FINGOLIMOD. [Concomitant]
     Active Substance: FINGOLIMOD
     Route: 065
  7. GLATIRAMER ACETATE. [Concomitant]
     Active Substance: GLATIRAMER ACETATE
     Route: 065
  8. OCRELIZUMAB. [Suspect]
     Active Substance: OCRELIZUMAB
     Dosage: THIRD OCRELIZUMAB INFUSION
     Route: 042
     Dates: start: 20190717
  9. PEGINTERFERON BETA-1A [Concomitant]
     Active Substance: PEGINTERFERON BETA-1A
     Route: 065
  10. OCRELIZUMAB. [Suspect]
     Active Substance: OCRELIZUMAB
     Indication: MULTIPLE SCLEROSIS
     Dosage: SECOND DOSE WAS RECEIVED ON 19/DEC/2018
     Route: 042
     Dates: start: 20181204
  11. TOLTERODIN [Concomitant]
     Active Substance: TOLTERODINE TARTRATE
     Indication: URGE INCONTINENCE
     Route: 048
     Dates: start: 20181008
  12. MOXIFLOXACIN. [Concomitant]
     Active Substance: MOXIFLOXACIN
  13. BACLOFEN. [Concomitant]
     Active Substance: BACLOFEN
     Indication: MUSCLE SPASTICITY
     Route: 048
     Dates: start: 20180709

REACTIONS (3)
  - Pneumonia [Not Recovered/Not Resolved]
  - Pulmonary embolism [Not Recovered/Not Resolved]
  - Oral herpes [Recovered/Resolved]

NARRATIVE: CASE EVENT DATE: 20190211
